FAERS Safety Report 24119403 (Version 1)
Quarter: 2024Q3

REPORT INFORMATION
  Report Type: Spontaneous
  Country: US (occurrence: None)
  Receive Date: 20240718
  Receipt Date: 20240718
  Transmission Date: 20241016
  Serious: Yes (Hospitalization)
  Sender: Public
  Company Number: None

PATIENT
  Age: 10 Year
  Sex: Male
  Weight: 37.8 kg

DRUGS (13)
  1. DUPIXENT [Suspect]
     Active Substance: DUPILUMAB
     Indication: Dermatitis atopic
  2. FAMOTIDINE [Concomitant]
     Active Substance: FAMOTIDINE
  3. PEPCID [Concomitant]
     Active Substance: FAMOTIDINE
  4. UNSPECIFIED INGREDIENT [Concomitant]
     Active Substance: UNSPECIFIED INGREDIENT
  5. FOLIC ACID [Concomitant]
     Active Substance: FOLIC ACID
  6. HUMIRA [Concomitant]
     Active Substance: ADALIMUMAB
  7. ADALIMUMAB [Concomitant]
     Active Substance: ADALIMUMAB\ISOPROPYL ALCOHOL
  8. METHOTREXATE [Concomitant]
     Active Substance: METHOTREXATE
  9. Sosy Mycophenolate [Concomitant]
  10. PIMECROLIMUS [Concomitant]
     Active Substance: PIMECROLIMUS
  11. PREDNISOLONE ACETATE [Concomitant]
     Active Substance: PREDNISOLONE ACETATE
  12. PREDNISONE [Concomitant]
     Active Substance: PREDNISONE
  13. VITAMINS [Concomitant]
     Active Substance: VITAMINS

REACTIONS (7)
  - Conjunctivitis [None]
  - Eye pain [None]
  - Photophobia [None]
  - Vitreous floaters [None]
  - Uveitis [None]
  - Inflammation [None]
  - Eye swelling [None]

NARRATIVE: CASE EVENT DATE: 20240514
